FAERS Safety Report 17680424 (Version 2)
Quarter: 2022Q1

REPORT INFORMATION
  Report Type: Spontaneous
  Country: US (occurrence: None)
  Receive Date: 20200417
  Receipt Date: 20220331
  Transmission Date: 20220423
  Serious: No
  Sender: FDA-Public Use
  Company Number: US-NEOPHARMA INC-000318

PATIENT
  Sex: Male

DRUGS (5)
  1. AUGMENTIN [Suspect]
     Active Substance: AMOXICILLIN\CLAVULANATE POTASSIUM
     Indication: Product used for unknown indication
  2. TOVIAZ [Suspect]
     Active Substance: FESOTERODINE FUMARATE
     Indication: Product used for unknown indication
     Dosage: TAKE 8 MG BY MOUTH DAILY/ ORAL TABLET SR 24 HR
     Route: 048
     Dates: start: 20200304
  3. AMOXICILLIN [Suspect]
     Active Substance: AMOXICILLIN
     Indication: Product used for unknown indication
  4. PRADAXA [Suspect]
     Active Substance: DABIGATRAN ETEXILATE MESYLATE
     Indication: Product used for unknown indication
  5. LACTOSE [Suspect]
     Active Substance: LACTOSE
     Indication: Product used for unknown indication

REACTIONS (1)
  - Hypersensitivity [Unknown]
